FAERS Safety Report 24701654 (Version 1)
Quarter: 2024Q4

REPORT INFORMATION
  Report Type: Spontaneous
  Country: FR (occurrence: FR)
  Receive Date: 20241205
  Receipt Date: 20241205
  Transmission Date: 20250114
  Serious: Yes (Hospitalization)
  Sender: TEVA
  Company Number: None

PATIENT
  Age: 64 Year
  Sex: Female

DRUGS (1)
  1. LEVOFLOXACIN [Suspect]
     Active Substance: LEVOFLOXACIN
     Indication: Cystitis
     Route: 048
     Dates: start: 20240828, end: 20240905

REACTIONS (1)
  - Tendon disorder [Recovered/Resolved]

NARRATIVE: CASE EVENT DATE: 20240905
